FAERS Safety Report 7391036-X (Version None)
Quarter: 2011Q2

REPORT INFORMATION
  Report Type: 
  Country: None (occurrence: None)
  Receive Date: 20110404
  Receipt Date: 20110322
  Transmission Date: 20111010
  Serious: Yes (Other)
  Sender: FDA-Public Use
  Company Number: US-JNJFOC-20110310872

PATIENT
  Sex: Female
  Weight: 98.43 kg

DRUGS (1)
  1. DURAGESIC-50 [Suspect]
     Indication: SPINAL CORD INJURY
     Route: 062

REACTIONS (3)
  - UPPER LIMB FRACTURE [None]
  - DECREASED APPETITE [None]
  - ABNORMAL LOSS OF WEIGHT [None]
